FAERS Safety Report 8811501 (Version 1)
Quarter: 2012Q4

REPORT INFORMATION
  Report Type: 
  Country: US (occurrence: US)
  Receive Date: 20120927
  Receipt Date: 20120927
  Transmission Date: 20130627
  Serious: No
  Sender: FDA-Public Use
  Company Number: US-PFIZER INC-2012238963

PATIENT
  Age: 51 Year
  Sex: Female
  Weight: 125 kg

DRUGS (10)
  1. CELEBREX [Suspect]
     Indication: MIGRAINE
     Dosage: UNK
  2. EFFEXOR [Suspect]
     Indication: MIGRAINE
     Dosage: UNK
  3. TENORMIN [Suspect]
     Indication: MIGRAINE
     Dosage: UNK
  4. ZOLOFT [Suspect]
     Indication: MIGRAINE
     Dosage: UNK
  5. VERAPAMIL HCL [Suspect]
     Indication: MIGRAINE
     Dosage: UNK
  6. AMITRIPTYLINE [Suspect]
     Indication: MIGRAINE
     Dosage: UNK
  7. DEPAKOTE [Suspect]
     Indication: MIGRAINE
     Dosage: UNK
  8. TEGRETOL [Suspect]
     Indication: MIGRAINE
     Dosage: UNK
  9. TOPAMAX [Suspect]
     Indication: MIGRAINE
     Dosage: UNK
  10. ZONEGRAN [Suspect]
     Indication: MIGRAINE
     Dosage: UNK

REACTIONS (1)
  - Drug ineffective [Unknown]
